FAERS Safety Report 4595633-6 (Version None)
Quarter: 2005Q1

REPORT INFORMATION
  Report Type: 
  Country: None (occurrence: None)
  Receive Date: 20050224
  Receipt Date: 20050207
  Transmission Date: 20050727
  Serious: Yes (Hospitalization)
  Sender: FDA-Public Use
  Company Number: 2005-125058-NL

PATIENT
  Age: 31 Year
  Sex: Female

DRUGS (1)
  1. MIRTAZAPINE [Suspect]
     Indication: DEPRESSION
     Dosage: 15 MG QD , ORAL
     Route: 048
     Dates: start: 20041101

REACTIONS (6)
  - ENTHESOPATHY [None]
  - HEPATITIS B VIRUS [None]
  - OSTEOARTHRITIS [None]
  - PLATELET COUNT DECREASED [None]
  - PSORIASIS [None]
  - YERSINIA INFECTION [None]
